FAERS Safety Report 19426359 (Version 1)
Quarter: 2021Q2

REPORT INFORMATION
  Report Type: Report from Study
  Country: US (occurrence: US)
  Receive Date: 20210617
  Receipt Date: 20210617
  Transmission Date: 20210717
  Serious: Yes (Hospitalization, Other)
  Sender: FDA-Public Use
  Company Number: US-AUROBINDO-AUR-APL-2021-024979

PATIENT
  Sex: Male
  Weight: 1.68 kg

DRUGS (2)
  1. IBUPROFEN. [Suspect]
     Active Substance: IBUPROFEN
     Indication: PRODUCT USED FOR UNKNOWN INDICATION
     Dosage: 2400 MILLIGRAM, ONCE A DAY
     Route: 064
  2. INDOMETHACIN. [Suspect]
     Active Substance: INDOMETHACIN
     Indication: PRODUCT USED FOR UNKNOWN INDICATION
     Dosage: 200 MILLIGRAM, ONCE A DAY
     Route: 064

REACTIONS (7)
  - Foetal exposure during pregnancy [Unknown]
  - Proteinuria [Unknown]
  - Cyanosis [Unknown]
  - Coagulopathy [Unknown]
  - Cardiac failure congestive [Unknown]
  - Renal failure [Unknown]
  - Haematuria [Unknown]
